FAERS Safety Report 25543424 (Version 2)
Quarter: 2025Q3

REPORT INFORMATION
  Report Type: Report from Study
  Country: US (occurrence: US)
  Receive Date: 20250711
  Receipt Date: 20250722
  Transmission Date: 20251020
  Serious: Yes (Other)
  Sender: IPSEN BIOPHARMACEUTICALS, INC.
  Company Number: US-IPSEN Group, Research and Development-2025-15920

PATIENT
  Age: 13 Year
  Sex: Male

DRUGS (4)
  1. ONIVYDE [Suspect]
     Active Substance: IRINOTECAN HYDROCHLORIDE
     Indication: Brain stem glioma
  2. ONIVYDE [Suspect]
     Active Substance: IRINOTECAN HYDROCHLORIDE
     Indication: Off label use
  3. PROHANCE [Suspect]
     Active Substance: GADOTERIDOL
     Indication: Brain stem glioma
  4. DEXAMETHASONE [Concomitant]
     Active Substance: DEXAMETHASONE

REACTIONS (5)
  - Glossopharyngeal nerve disorder [Unknown]
  - Muscular weakness [Not Recovered/Not Resolved]
  - Facial nerve disorder [Unknown]
  - Hypoglossal nerve disorder [Unknown]
  - Off label use [Unknown]
